FAERS Safety Report 19228606 (Version 2)
Quarter: 2022Q1

REPORT INFORMATION
  Report Type: Report from Study
  Country: US (occurrence: US)
  Receive Date: 20210506
  Receipt Date: 20220322
  Transmission Date: 20220423
  Serious: Yes (Other)
  Sender: FDA-Public Use
  Company Number: US-HORIZON THERAPEUTICS-HZN-2021-002106

PATIENT

DRUGS (2)
  1. RAYOS [Suspect]
     Active Substance: PREDNISONE
     Indication: Giant cell arteritis
     Dosage: 5 MG, QD (1 TABLET AT NIGHT)
     Route: 065
  2. RAYOS [Suspect]
     Active Substance: PREDNISONE
     Indication: Multifocal fibrosclerosis
     Dosage: 5 MG, QN ADD
     Route: 048

REACTIONS (3)
  - Haemorrhage [Unknown]
  - Fall [Unknown]
  - Contusion [Unknown]

NARRATIVE: CASE EVENT DATE: 20210429
